FAERS Safety Report 6188728-7 (Version None)
Quarter: 2009Q2

REPORT INFORMATION
  Report Type: 
  Country: None (occurrence: None)
  Receive Date: 20090513
  Receipt Date: 20090508
  Transmission Date: 20091009
  Serious: Yes (Other)
  Sender: FDA-Public Use
  Company Number: GB-JNJFOC-20090500833

PATIENT
  Age: 16 Year

DRUGS (7)
  1. INFLIXIMAB [Suspect]
     Indication: GRAFT VERSUS HOST DISEASE
     Route: 042
  2. BUSULFAN [Suspect]
     Indication: STEM CELL TRANSPLANT
  3. CYCLOSPORINE [Suspect]
     Indication: PROPHYLAXIS
  4. CYCLOPHOSPHAMIDE [Suspect]
     Indication: STEM CELL TRANSPLANT
  5. MYCOPHENOLIC ACID [Suspect]
     Indication: GRAFT VERSUS HOST DISEASE
  6. PREDNISOLONE [Suspect]
     Indication: GRAFT VERSUS HOST DISEASE
  7. TACROLIMUS [Suspect]
     Indication: GRAFT VERSUS HOST DISEASE

REACTIONS (9)
  - BRONCHIECTASIS [None]
  - DEPRESSION [None]
  - DRUG INEFFECTIVE [None]
  - HYPERTENSION [None]
  - OSTEONECROSIS [None]
  - OSTEOPOROSIS [None]
  - RENAL IMPAIRMENT [None]
  - TREMOR [None]
  - UPPER RESPIRATORY TRACT INFECTION [None]
